FAERS Safety Report 7803591-3 (Version None)
Quarter: 2011Q4

REPORT INFORMATION
  Report Type: 
  Country: None (occurrence: None)
  Receive Date: 20111009
  Receipt Date: 20111005
  Transmission Date: 20120403
  Serious: Yes (Other)
  Sender: FDA-Public Use
  Company Number: CA-BRISTOL-MYERS SQUIBB COMPANY-15936362

PATIENT
  Age: 83 Year
  Sex: Female
  Weight: 91 kg

DRUGS (7)
  1. GLYBURIDE [Concomitant]
  2. FOLIC ACID [Concomitant]
  3. RAMIPRIL [Concomitant]
  4. COUMADIN [Suspect]
     Indication: DEEP VEIN THROMBOSIS
     Route: 048
     Dates: start: 20110601
  5. VITAMIN B-12 [Concomitant]
     Dosage: FORMULATION:INJECTION
  6. LEVOTHYROXINE SODIUM [Concomitant]
  7. WARFARIN SODIUM [Concomitant]
     Indication: DEEP VEIN THROMBOSIS
     Route: 048
     Dates: start: 20100701, end: 20110601

REACTIONS (9)
  - FATIGUE [None]
  - DYSPNOEA [None]
  - NAUSEA [None]
  - THROMBOSIS [None]
  - DECREASED APPETITE [None]
  - PANIC ATTACK [None]
  - MUSCLE SPASMS [None]
  - TEMPERATURE INTOLERANCE [None]
  - CHOKING SENSATION [None]
